FAERS Safety Report 14618158 (Version 1)
Quarter: 2018Q1

REPORT INFORMATION
  Report Type: Spontaneous
  Country: FR (occurrence: FR)
  Receive Date: 20180309
  Receipt Date: 20180309
  Transmission Date: 20180509
  Serious: Yes (Hospitalization)
  Sender: FDA-Public Use
  Company Number: FR-PFIZER INC-2018094242

PATIENT
  Age: 38 Year
  Sex: Female

DRUGS (1)
  1. XANAX [Suspect]
     Active Substance: ALPRAZOLAM
     Dosage: 30 MG, 1X/DAY

REACTIONS (3)
  - Overdose [Recovered/Resolved]
  - Drug detoxification [Recovered/Resolved]
  - Drug dependence [Recovered/Resolved]
